FAERS Safety Report 15704250 (Version 1)
Quarter: 2018Q4

REPORT INFORMATION
  Report Type: Spontaneous
  Country: CH (occurrence: CH)
  Receive Date: 20181210
  Receipt Date: 20181210
  Transmission Date: 20190205
  Serious: Yes (Hospitalization)
  Sender: FDA-Public Use
  Company Number: CH-ELI_LILLY_AND_COMPANY-CH201811013744

PATIENT
  Age: 80 Year
  Sex: Male

DRUGS (10)
  1. FORTECORTIN [DEXAMETHASONE] [Concomitant]
     Dosage: 4 MG, CYCLICAL
     Route: 048
     Dates: start: 20180705, end: 20181018
  2. ANDREAFOL [Concomitant]
     Dosage: .4 MG, UNK
     Route: 048
  3. KEYTRUDA [Suspect]
     Active Substance: PEMBROLIZUMAB
     Indication: LUNG ADENOCARCINOMA
     Dosage: 200 MG, CYCLICAL
     Dates: start: 20180816, end: 20181018
  4. ALIMTA [Suspect]
     Active Substance: PEMETREXED DISODIUM
     Dosage: 991 MG, CYCLICAL
     Route: 041
     Dates: start: 20180816, end: 20181018
  5. FORTECORTIN [DEXAMETHASONE] [Concomitant]
     Dosage: 8 MG, UNKNOWN
     Route: 048
     Dates: start: 20180705, end: 20181018
  6. ALIMTA [Suspect]
     Active Substance: PEMETREXED DISODIUM
     Indication: LUNG ADENOCARCINOMA
     Dosage: 986 MG, CYCLICAL
     Route: 041
     Dates: start: 20180705, end: 20180726
  7. CARBOPLATIN. [Suspect]
     Active Substance: CARBOPLATIN
     Dosage: 544 MG, CYCLICAL
     Route: 041
     Dates: start: 20180816, end: 20180906
  8. ALOXI [Concomitant]
     Active Substance: PALONOSETRON HYDROCHLORIDE
     Indication: ANTIEMETIC SUPPORTIVE CARE
     Dosage: .25 MG, UNK
     Route: 040
     Dates: start: 20180705, end: 20181018
  9. VITARUBIN [HYDROXOCOBALAMIN ACETATE] [Concomitant]
     Dosage: 1 MG, EVERY 9 WEEKS
     Route: 030
  10. CARBOPLATIN. [Suspect]
     Active Substance: CARBOPLATIN
     Indication: LUNG ADENOCARCINOMA
     Dosage: 558 MG, CYCLICAL
     Route: 041
     Dates: start: 20180705, end: 20180726

REACTIONS (2)
  - Myocarditis [Recovering/Resolving]
  - Radiation interaction [Recovering/Resolving]

NARRATIVE: CASE EVENT DATE: 20181108
